FAERS Safety Report 9356810 (Version 4)
Quarter: 2013Q3

REPORT INFORMATION
  Report Type: Spontaneous
  Country: SE (occurrence: SE)
  Receive Date: 20130619
  Receipt Date: 20130820
  Transmission Date: 20140515
  Serious: Yes (Other)
  Sender: FDA-Public Use
  Company Number: SE-AMGEN-SWESP2013037895

PATIENT
  Age: 82 Year
  Sex: Female

DRUGS (16)
  1. PROLIA [Suspect]
     Indication: OSTEOPOROSIS
     Dosage: 60 MG, CYCLICAL
     Route: 058
     Dates: start: 20110309
  2. CALCICHEW-D3 [Concomitant]
     Dosage: 500 MG, UNK
  3. NITROLINGUAL [Concomitant]
  4. AMLODIPIN ACCORD [Concomitant]
     Dosage: 10 MG, UNK
  5. VITAMIN D                          /00107901/ [Concomitant]
     Dosage: 80 IU/DROP
  6. NATRIUMKLORID BAXTER [Concomitant]
     Dosage: 500 MG, UNK
  7. COMBIZYM                           /00014701/ [Concomitant]
  8. ATARAX                             /00058401/ [Concomitant]
  9. SAROTEN [Concomitant]
     Dosage: 10 MG, UNK
  10. INDERAL [Concomitant]
     Dosage: 10 MG, UNK
  11. PAPAVERIN RECIP [Concomitant]
     Dosage: 40 MG, UNK
  12. LEVAXIN [Concomitant]
     Dosage: 50 MUG, UNK
  13. CITODON                            /00116401/ [Concomitant]
     Dosage: 500 MG/30 MG
  14. SELOKENZOC [Concomitant]
     Dosage: 50 MG, UNK
  15. IMOVANE [Concomitant]
     Dosage: 7.5 MG, UNK
  16. XALATAN [Concomitant]
     Dosage: 50 MUG/ML, UNK

REACTIONS (1)
  - Headache [Recovered/Resolved]
